FAERS Safety Report 4680891-X (Version None)
Quarter: 2005Q2

REPORT INFORMATION
  Report Type: 
  Country: None (occurrence: None)
  Receive Date: 20050603
  Receipt Date: 20050426
  Transmission Date: 20051028
  Serious: Yes (Hospitalization)
  Sender: FDA-Public Use
  Company Number: US-AMGEN-US129477

PATIENT
  Age: 9 Year
  Sex: Male

DRUGS (7)
  1. EPOGEN [Suspect]
     Indication: DIALYSIS
     Dates: start: 20050204
  2. LABETALOL [Concomitant]
     Dates: start: 20050319
  3. NIFEDIPINE [Concomitant]
     Dates: start: 20050319
  4. COZAAR [Concomitant]
     Dates: start: 20050319
  5. ENALAPRIL MALEATE [Concomitant]
     Dates: start: 20050319
  6. NORVASC [Concomitant]
     Dates: start: 20050319
  7. CLONIDINE [Concomitant]
     Route: 062
     Dates: start: 20050319

REACTIONS (6)
  - CEREBRAL PARENCHYMAL CALCIFICATION [None]
  - CONVULSION [None]
  - GRAND MAL CONVULSION [None]
  - HYPERTENSIVE ENCEPHALOPATHY [None]
  - HYPOCALCAEMIA [None]
  - PARTIAL SEIZURES [None]
